FAERS Safety Report 9460435 (Version 1)
Quarter: 2013Q3

REPORT INFORMATION
  Report Type: Spontaneous
  Country: US (occurrence: US)
  Receive Date: 20130815
  Receipt Date: 20130815
  Transmission Date: 20140515
  Serious: Yes (Hospitalization, Other)
  Sender: FDA-Public Use
  Company Number: US-ABBOTT-13P-163-1131383-00

PATIENT
  Age: 45 Year
  Sex: Female
  Weight: 72.64 kg

DRUGS (25)
  1. HUMIRA [Suspect]
     Indication: POLYCHONDRITIS
     Dates: start: 2011
  2. HUMIRA [Suspect]
  3. ADDERALL [Concomitant]
     Indication: FATIGUE
  4. DURAGESIC [Concomitant]
     Indication: PAIN
  5. DUREZOL [Concomitant]
     Indication: SCLERITIS
  6. DUREZOL [Concomitant]
     Indication: UVEITIS
  7. DUREZOL [Concomitant]
     Indication: EPISCLERITIS
  8. EFFEXOR [Concomitant]
     Indication: DEPRESSION
  9. FOLIC ACID [Concomitant]
     Indication: LIVER DISORDER
  10. JINTELI [Concomitant]
     Indication: NIGHT SWEATS
  11. JINTELI [Concomitant]
     Indication: MENOPAUSE
  12. KLONOPIN [Concomitant]
     Indication: ANXIETY
  13. KLONOPIN [Concomitant]
     Indication: RESTLESS LEGS SYNDROME
  14. LORTAB [Concomitant]
     Indication: PAIN
  15. NEXIUM [Concomitant]
     Indication: GASTROOESOPHAGEAL REFLUX DISEASE
  16. PREDNISONE [Concomitant]
     Indication: POLYCHONDRITIS
  17. METHOTREXATE [Concomitant]
     Indication: POLYCHONDRITIS
  18. VITAMIN D [Concomitant]
     Indication: VITAMIN SUPPLEMENTATION
  19. IRON [Concomitant]
     Indication: ANAEMIA
  20. LISINOPRIL [Concomitant]
     Indication: HYPERTENSION
  21. TRAZADONE [Concomitant]
     Indication: INSOMNIA
  22. TRAZADONE [Concomitant]
     Indication: ANXIETY
  23. CYMBALTA [Concomitant]
     Indication: PAIN
  24. RECLAST [Concomitant]
     Indication: BONE DISORDER
  25. VITAMIN B-12 [Concomitant]
     Indication: VITAMIN SUPPLEMENTATION

REACTIONS (6)
  - Stress fracture [Not Recovered/Not Resolved]
  - Cellulitis [Not Recovered/Not Resolved]
  - Injury [Unknown]
  - Fall [Unknown]
  - Motor dysfunction [Unknown]
  - Arthritis [Unknown]
